FAERS Safety Report 23549154 (Version 1)
Quarter: 2024Q1

REPORT INFORMATION
  Report Type: Report from Study
  Country: CA (occurrence: CA)
  Receive Date: 20240221
  Receipt Date: 20240221
  Transmission Date: 20240410
  Serious: Yes (Other)
  Sender: FDA-Public Use
  Company Number: CA-TAKEDA-2022TUS019021

PATIENT
  Age: 51 Year
  Sex: Female

DRUGS (6)
  1. BRIGATINIB [Suspect]
     Active Substance: BRIGATINIB
     Indication: Non-small cell lung cancer
     Dosage: 90 MILLIGRAM, QD
     Route: 048
     Dates: start: 20220311
  2. BRIGATINIB [Suspect]
     Active Substance: BRIGATINIB
     Dosage: 180 MILLIGRAM, QD
     Route: 048
     Dates: start: 20220425
  3. BRIGATINIB [Suspect]
     Active Substance: BRIGATINIB
     Dosage: 120 MILLIGRAM
     Route: 048
  4. OMEGA-3 ACIDS [Concomitant]
     Active Substance: OMEGA-3 FATTY ACIDS
     Dosage: UNK
     Route: 065
  5. VITAMIN D [Concomitant]
     Active Substance: VITAMIN D NOS
     Dosage: 5000 INTERNATIONAL UNIT
     Route: 065
  6. TYLENOL [Concomitant]
     Active Substance: ACETAMINOPHEN
     Route: 065

REACTIONS (14)
  - Metastases to central nervous system [Unknown]
  - Feeling drunk [Unknown]
  - Blood pressure abnormal [Not Recovered/Not Resolved]
  - Blood pressure increased [Recovered/Resolved]
  - Supraventricular tachycardia [Unknown]
  - Dry throat [Unknown]
  - Dry mouth [Unknown]
  - Dry eye [Unknown]
  - Dizziness [Unknown]
  - Pain [Unknown]
  - Sinus headache [Unknown]
  - Headache [Unknown]
  - Nausea [Unknown]
  - Off label use [Unknown]

NARRATIVE: CASE EVENT DATE: 20220311
